FAERS Safety Report 8504237-1 (Version None)
Quarter: 2012Q3

REPORT INFORMATION
  Report Type: 
  Country: None (occurrence: None)
  Receive Date: 20120711
  Receipt Date: 20120704
  Transmission Date: 20120928
  Serious: Yes (Hospitalization)
  Sender: FDA-Public Use
  Company Number: GB-UCBSA-061093

PATIENT
  Age: 61 Year
  Sex: Female

DRUGS (1)
  1. CIMZIA [Suspect]

REACTIONS (4)
  - PNEUMONIA ASPIRATION [None]
  - HERPES ZOSTER [None]
  - HERPES ZOSTER OTICUS [None]
  - DEHYDRATION [None]
